FAERS Safety Report 4662101-2 (Version None)
Quarter: 2005Q2

REPORT INFORMATION
  Report Type: 
  Country: None (occurrence: None)
  Receive Date: 20050512
  Receipt Date: 20050418
  Transmission Date: 20051028
  Serious: Yes (Other)
  Sender: FDA-Public Use
  Company Number: PAR_0036_2005

PATIENT
  Age: 75 Year
  Sex: Female

DRUGS (3)
  1. IBUPROFEN [Suspect]
     Indication: ARTHRALGIA
     Dosage: DF PO
     Route: 048
  2. DIURETIC (NOS) [Concomitant]
  3. ANGIOTENSIN-CONVERTING ENZYME INHIBITOR (ACE INHIBITOR) NOS [Concomitant]

REACTIONS (9)
  - ABDOMINAL PAIN LOWER [None]
  - BIOPSY SITE UNSPECIFIED ABNORMAL [None]
  - COLITIS [None]
  - COLONIC HAEMORRHAGE [None]
  - COMPUTERISED TOMOGRAM ABNORMAL [None]
  - DIARRHOEA HAEMORRHAGIC [None]
  - GASTROINTESTINAL OEDEMA [None]
  - INFLAMMATION [None]
  - LARGE INTESTINAL ULCER [None]
